FAERS Safety Report 17373071 (Version 3)
Quarter: 2020Q1

REPORT INFORMATION
  Report Type: Spontaneous
  Country: JP (occurrence: JP)
  Receive Date: 20200205
  Receipt Date: 20200228
  Transmission Date: 20200409
  Serious: Yes (Other)
  Sender: FDA-Public Use
  Company Number: JP-ROCHE-2358237

PATIENT
  Age: 40 Year
  Sex: Female

DRUGS (7)
  1. AVASTIN [Suspect]
     Active Substance: BEVACIZUMAB
     Indication: MUCINOUS ADENOCARCINOMA OF APPENDIX
     Route: 041
  2. IRINOTECAN HYDROCHLORIDE. [Concomitant]
     Active Substance: IRINOTECAN HYDROCHLORIDE
     Indication: MUCINOUS ADENOCARCINOMA OF APPENDIX
     Dosage: DOSAGE IS UNCERTAIN. ?FOUR COURSES
     Route: 041
  3. OXALIPLATIN. [Concomitant]
     Active Substance: OXALIPLATIN
     Indication: MUCINOUS ADENOCARCINOMA OF APPENDIX
     Route: 041
  4. FLUOROURACIL. [Concomitant]
     Active Substance: FLUOROURACIL
     Indication: MUCINOUS ADENOCARCINOMA OF APPENDIX
     Route: 040
  5. FLUOROURACIL. [Concomitant]
     Active Substance: FLUOROURACIL
     Route: 041
  6. LEVOFOLINATE CALCIUM [Concomitant]
     Active Substance: LEVOLEUCOVORIN CALCIUM
     Indication: MUCINOUS ADENOCARCINOMA OF APPENDIX
     Dosage: DOSAGE IS UNCERTAIN. ?FOUR COURSES
     Route: 041
  7. XELODA [Suspect]
     Active Substance: CAPECITABINE
     Indication: MUCINOUS ADENOCARCINOMA OF APPENDIX
     Dosage: DOSAGE IS UNCERTAIN. ?ONE COURSE
     Route: 048

REACTIONS (5)
  - Disease progression [Unknown]
  - Ascites [Unknown]
  - Intentional product use issue [Unknown]
  - Off label use [Unknown]
  - Lymphadenopathy [Unknown]
